FAERS Safety Report 8032840-4 (Version None)
Quarter: 2012Q1

REPORT INFORMATION
  Report Type: 
  Country: None (occurrence: None)
  Receive Date: 20120110
  Receipt Date: 20120103
  Transmission Date: 20120608
  Serious: Yes (Hospitalization)
  Sender: FDA-Public Use
  Company Number: US-US-EMD SERONO, INC.-7104869

PATIENT
  Sex: Male
  Weight: 65 kg

DRUGS (4)
  1. LISINOPRIL [Concomitant]
     Indication: HYPERTENSION
  2. SIMVASTATIN [Concomitant]
     Indication: BLOOD CHOLESTEROL INCREASED
  3. XANAX [Concomitant]
     Indication: MUSCLE SPASMS
  4. REBIF [Suspect]
     Indication: MULTIPLE SCLEROSIS
     Route: 058
     Dates: start: 20110105

REACTIONS (3)
  - ARTHRITIS [None]
  - INJECTION SITE HAEMATOMA [None]
  - ADVERSE DRUG REACTION [None]
